FAERS Safety Report 24018554 (Version 1)
Quarter: 2024Q2

REPORT INFORMATION
  Report Type: Spontaneous
  Country: US (occurrence: US)
  Receive Date: 20240627
  Receipt Date: 20240627
  Transmission Date: 20240715
  Serious: Yes (Hospitalization)
  Sender: FDA-Public Use
  Company Number: None

PATIENT

DRUGS (2)
  1. IBUPROFEN [Suspect]
     Active Substance: IBUPROFEN
     Indication: Pain
     Dosage: UNK (LARGE, UNKNOWN QUANTITIES)
     Route: 065
  2. ACETAMINOPHEN [Suspect]
     Active Substance: ACETAMINOPHEN
     Indication: Pain
     Dosage: UNK (LARGE, UNKNOWN QUANTITIES)
     Route: 065

REACTIONS (5)
  - Liver injury [Recovered/Resolved]
  - Bacteraemia [Recovered/Resolved]
  - Parvimonas micra infection [Recovered/Resolved]
  - Intentional product use issue [Recovered/Resolved]
  - Renal tubular necrosis [Recovered/Resolved]
